FAERS Safety Report 13896764 (Version 1)
Quarter: 2017Q3

REPORT INFORMATION
  Report Type: Spontaneous
  Country: US (occurrence: US)
  Receive Date: 20170822
  Receipt Date: 20170822
  Transmission Date: 20171127
  Serious: Yes (Death, Hospitalization)
  Sender: FDA-Public Use
  Company Number: None

PATIENT
  Age: 70 Year
  Sex: Male

DRUGS (5)
  1. DIGOXIN. [Concomitant]
     Active Substance: DIGOXIN
  2. IRBESARTAN. [Concomitant]
     Active Substance: IRBESARTAN
  3. METOPROLOL SUCCINATE. [Concomitant]
     Active Substance: METOPROLOL SUCCINATE
  4. RIVAROXABAN [Suspect]
     Active Substance: RIVAROXABAN
     Indication: ATRIAL FIBRILLATION
     Route: 048
  5. ALFUZOSIN [Concomitant]
     Active Substance: ALFUZOSIN

REACTIONS (2)
  - Haemorrhage intracranial [None]
  - Confusional state [None]

NARRATIVE: CASE EVENT DATE: 20170815
